FAERS Safety Report 4640423-9 (Version None)
Quarter: 2005Q2

REPORT INFORMATION
  Report Type: 
  Country: None (occurrence: None)
  Receive Date: 20050419
  Receipt Date: 20050406
  Transmission Date: 20051028
  Serious: Yes (Other)
  Sender: FDA-Public Use
  Company Number: 2005056062

PATIENT
  Age: 47 Year
  Sex: Female
  Weight: 67.586 kg

DRUGS (2)
  1. AZITHROMYCIN [Suspect]
     Indication: UPPER RESPIRATORY TRACT INFECTION
     Dosage: UNK (250 MG), ORAL
     Route: 048
     Dates: start: 20041215, end: 20050405
  2. SERTRALINE HCL [Concomitant]

REACTIONS (1)
  - COLITIS ISCHAEMIC [None]
